FAERS Safety Report 10092644 (Version 1)
Quarter: 2014Q2

REPORT INFORMATION
  Report Type: Spontaneous
  Country: US (occurrence: US)
  Receive Date: 20140421
  Receipt Date: 20140421
  Transmission Date: 20141212
  Serious: No
  Sender: FDA-Public Use
  Company Number: US-SANOFI-AVENTIS-2013SA062091

PATIENT
  Age: 52 Year
  Sex: Male
  Weight: 99.79 kg

DRUGS (2)
  1. ALLEGRA [Suspect]
     Indication: HYPERSENSITIVITY
     Route: 048
     Dates: start: 20130517, end: 20130607
  2. VITAMINS [Suspect]

REACTIONS (4)
  - Throat irritation [Recovered/Resolved]
  - Cough [Recovered/Resolved]
  - Drug dose omission [Unknown]
  - Drug ineffective for unapproved indication [Unknown]
